FAERS Safety Report 8323277-9 (Version None)
Quarter: 2012Q2

REPORT INFORMATION
  Report Type: 
  Country: None (occurrence: None)
  Receive Date: 20120430
  Receipt Date: 20100701
  Transmission Date: 20120825
  Serious: Yes (Hospitalization, Other)
  Sender: FDA-Public Use
  Company Number: IT-ABBOTT-10P-083-0654875-00

PATIENT
  Sex: Female

DRUGS (4)
  1. SAMYR [Suspect]
     Indication: SUICIDE ATTEMPT
     Dosage: 6 UNITS
     Route: 048
     Dates: start: 20100604, end: 20100604
  2. HALDOL [Suspect]
     Indication: SUICIDE ATTEMPT
     Dosage: DAILY
     Route: 048
     Dates: start: 20100604, end: 20100604
  3. PAROXETINE [Suspect]
     Indication: SUICIDE ATTEMPT
     Dosage: DAILY
     Route: 048
     Dates: start: 20100604, end: 20100604
  4. AKINETON [Suspect]
     Indication: PRODUCT USED FOR UNKNOWN INDICATION
     Dosage: 30 UNITS
     Route: 048
     Dates: start: 20100604, end: 20100604

REACTIONS (3)
  - MYDRIASIS [None]
  - SOPOR [None]
  - SUICIDE ATTEMPT [None]
